FAERS Safety Report 13565753 (Version 1)
Quarter: 2017Q2

REPORT INFORMATION
  Report Type: Report from Study
  Country: US (occurrence: US)
  Receive Date: 20170520
  Receipt Date: 20170520
  Transmission Date: 20170830
  Serious: Yes (Hospitalization)
  Sender: FDA-Public Use
  Company Number: US-AMGEN-USASL2017074462

PATIENT
  Age: 83 Year
  Sex: Female

DRUGS (1)
  1. PROLIA [Suspect]
     Active Substance: DENOSUMAB
     Indication: OSTEOPOROSIS
     Dosage: 60 MG, Q6MO
     Route: 058

REACTIONS (7)
  - Unevaluable event [Unknown]
  - Asthenia [Unknown]
  - Diarrhoea [Unknown]
  - Impaired driving ability [Not Recovered/Not Resolved]
  - Lung disorder [Unknown]
  - Pain in extremity [Unknown]
  - Hospice care [Not Recovered/Not Resolved]
